FAERS Safety Report 18024677 (Version 1)
Quarter: 2020Q3

REPORT INFORMATION
  Report Type: Spontaneous
  Country: US (occurrence: US)
  Receive Date: 20200715
  Receipt Date: 20200715
  Transmission Date: 20201103
  Serious: Yes (Disabling)
  Sender: FDA-Public Use
  Company Number: None

PATIENT
  Age: 42 Year
  Sex: Female
  Weight: 58.5 kg

DRUGS (1)
  1. LUPRON [Suspect]
     Active Substance: LEUPROLIDE ACETATE
     Indication: ENDOMETRIOSIS
     Dosage: ?          QUANTITY:1 INJECTION(S);OTHER FREQUENCY:EVERY TWO WEEKS;?
     Route: 030

REACTIONS (14)
  - Headache [None]
  - Arthralgia [None]
  - Jaw fracture [None]
  - Vitamin B12 deficiency [None]
  - Cognitive disorder [None]
  - Alopecia [None]
  - Amnesia [None]
  - Skin lesion [None]
  - White blood cell count increased [None]
  - Fatigue [None]
  - Insomnia [None]
  - Tooth loss [None]
  - General physical health deterioration [None]
  - Pain [None]

NARRATIVE: CASE EVENT DATE: 20140217
